FAERS Safety Report 11846809 (Version 1)
Quarter: 2015Q4

REPORT INFORMATION
  Report Type: Spontaneous
  Country: US (occurrence: US)
  Receive Date: 20151217
  Receipt Date: 20151217
  Transmission Date: 20160305
  Serious: No
  Sender: FDA-Public Use
  Company Number: US-BAYER-2015-490891

PATIENT
  Age: 3 Year
  Weight: 16.33 kg

DRUGS (1)
  1. CHILDREN CLARITIN ALLERGY [Suspect]
     Active Substance: LORATADINE

REACTIONS (1)
  - Accidental exposure to product by child [None]
